FAERS Safety Report 14986995 (Version 3)
Quarter: 2018Q3

REPORT INFORMATION
  Report Type: Spontaneous
  Country: US (occurrence: US)
  Receive Date: 20180608
  Receipt Date: 20180713
  Transmission Date: 20181010
  Serious: Yes (Other)
  Sender: FDA-Public Use
  Company Number: US-INCYTE CORPORATION-2018IN004448

PATIENT

DRUGS (4)
  1. JAKAFI [Suspect]
     Active Substance: RUXOLITINIB
     Indication: MYELOFIBROSIS
     Dosage: 15 MG, BID
     Route: 048
     Dates: start: 20180409, end: 20180531
  2. JAKAFI [Suspect]
     Active Substance: RUXOLITINIB
     Dosage: 10 MG, BID
     Route: 065
     Dates: start: 20180601
  3. ZOLOFT [Concomitant]
     Active Substance: SERTRALINE HYDROCHLORIDE
     Indication: PRODUCT USED FOR UNKNOWN INDICATION
     Dosage: UNK
     Route: 065
  4. JAKAFI [Suspect]
     Active Substance: RUXOLITINIB
     Dosage: 15 MG, QD
     Route: 065

REACTIONS (10)
  - Blood count abnormal [Recovering/Resolving]
  - Hepatic cyst [Not Recovered/Not Resolved]
  - Renal cyst [Not Recovered/Not Resolved]
  - Haematocrit abnormal [Recovering/Resolving]
  - White blood cell count abnormal [Recovering/Resolving]
  - Haemoglobin abnormal [Recovering/Resolving]
  - Incorrect dose administered [Unknown]
  - Diverticulitis [Not Recovered/Not Resolved]
  - Red blood cell count abnormal [Recovering/Resolving]
  - Platelet count decreased [Recovering/Resolving]

NARRATIVE: CASE EVENT DATE: 20180420
